FAERS Safety Report 8102944-6 (Version None)
Quarter: 2012Q1

REPORT INFORMATION
  Report Type: 
  Country: None (occurrence: None)
  Receive Date: 20120127
  Receipt Date: 20120116
  Transmission Date: 20120608
  Serious: Yes (Other)
  Sender: FDA-Public Use
  Company Number: 2011-5198

PATIENT
  Age: 28 Year
  Sex: Female

DRUGS (1)
  1. DYSPORT [Suspect]
     Indication: MUSCLE SPASTICITY
     Dosage: 1000 UNITS (1000 UNITS, SINGLE CYCLE) , INTRAMUSULAR
     Route: 030
     Dates: start: 20110806, end: 20110806

REACTIONS (4)
  - GAIT DISTURBANCE [None]
  - MOVEMENT DISORDER [None]
  - ASTHENIA [None]
  - DYSPHAGIA [None]
